FAERS Safety Report 16849144 (Version 7)
Quarter: 2020Q3

REPORT INFORMATION
  Report Type: Report from Study
  Country: FR (occurrence: FR)
  Receive Date: 20190925
  Receipt Date: 20200826
  Transmission Date: 20201102
  Serious: Yes (Hospitalization)
  Sender: FDA-Public Use
  Company Number: FR-ROCHE-2406809

PATIENT
  Age: 81 Year
  Sex: Female
  Weight: 70 kg

DRUGS (9)
  1. CYCLOPHOSPHAMIDE. [Suspect]
     Active Substance: CYCLOPHOSPHAMIDE
     Indication: MANTLE CELL LYMPHOMA
     Dosage: FOR 3 CYCLES
     Route: 065
     Dates: start: 20190820, end: 20200127
  2. VINCRISTINE [Suspect]
     Active Substance: VINCRISTINE
     Indication: MANTLE CELL LYMPHOMA
     Dosage: FOR 3 CYCLES
     Route: 065
     Dates: start: 20190820, end: 20200127
  3. RITUXIMAB. [Suspect]
     Active Substance: RITUXIMAB
     Indication: MANTLE CELL LYMPHOMA
     Dosage: 1400 MG EVERY 8 WEEKS FOR 24 MONTHS?DAILY DOSE GIVEN BEFORE SAE ONSET: 1400 MG.?MOST RECENT DOSE OF
     Route: 058
     Dates: start: 20200206
  4. DEXAMETHASONE. [Suspect]
     Active Substance: DEXAMETHASONE
     Indication: MANTLE CELL LYMPHOMA
     Dosage: FOR 4 CYCLES
     Route: 065
     Dates: start: 20190820
  5. PREDNISONE. [Suspect]
     Active Substance: PREDNISONE
     Indication: MANTLE CELL LYMPHOMA
     Dosage: FOR 3 CYCLES
     Route: 065
     Dates: start: 20190820, end: 20200127
  6. CYTARABINE. [Suspect]
     Active Substance: CYTARABINE
     Indication: MANTLE CELL LYMPHOMA
     Dosage: FOR 4 CYCLES
     Route: 065
     Dates: start: 20190820
  7. DOXORUBICIN [Suspect]
     Active Substance: DOXORUBICIN
     Indication: MANTLE CELL LYMPHOMA
     Dosage: FOR 3 CYCLES
     Route: 065
     Dates: start: 20190820, end: 20200127
  8. RITUXIMAB. [Suspect]
     Active Substance: RITUXIMAB
     Indication: MANTLE CELL LYMPHOMA
     Dosage: FOR 3 CYCLES
     Route: 065
     Dates: start: 20190820, end: 20200127
  9. LENALIDOMIDE [Suspect]
     Active Substance: LENALIDOMIDE
     Indication: MANTLE CELL LYMPHOMA
     Dosage: 15 MG 3 WEEKS EVERY 4 WEEKS FOR 24 MONTHS CYCLE 3?DAILY DOSE BEFORE SAE ONSET: 10 MG
     Route: 065
     Dates: start: 20200206

REACTIONS (6)
  - Nausea [Recovered/Resolved]
  - Diarrhoea [Recovered/Resolved]
  - Renal failure [Recovered/Resolved]
  - General physical health deterioration [Recovered/Resolved]
  - Gout [Recovered/Resolved]
  - Clostridium difficile colitis [Recovered/Resolved]

NARRATIVE: CASE EVENT DATE: 20190908
